FAERS Safety Report 5896200-4 (Version None)
Quarter: 2008Q3

REPORT INFORMATION
  Report Type: 
  Country: None (occurrence: None)
  Receive Date: 20080924
  Receipt Date: 20070813
  Transmission Date: 20090109
  Serious: Yes (Other)
  Sender: FDA-Public Use
  Company Number: US-ASTRAZENECA-2007UW10957

PATIENT
  Age: 15249 Day
  Sex: Female

DRUGS (3)
  1. SEROQUEL [Suspect]
     Indication: DEPRESSION
     Route: 048
     Dates: start: 20030401, end: 20060322
  2. RISPERDAL [Concomitant]
     Dates: start: 20070808
  3. ZYPREXA [Concomitant]

REACTIONS (1)
  - PANCREATITIS ACUTE [None]
